FAERS Safety Report 12092061 (Version 2)
Quarter: 2016Q1

REPORT INFORMATION
  Report Type: Report from Study
  Country: US (occurrence: US)
  Receive Date: 20160219
  Receipt Date: 20160224
  Transmission Date: 20160526
  Serious: Yes (Hospitalization)
  Sender: FDA-Public Use
  Company Number: US-BAYER-2016-010686

PATIENT
  Age: 58 Year
  Sex: Male

DRUGS (1)
  1. NEXAVAR [Suspect]
     Active Substance: SORAFENIB
     Indication: HEPATOCELLULAR CARCINOMA
     Dosage: 200 MG, BID
     Route: 048
     Dates: start: 20160116

REACTIONS (11)
  - Blood potassium increased [None]
  - Dysphonia [None]
  - Abdominal distension [None]
  - Pain of skin [None]
  - Decreased appetite [Not Recovered/Not Resolved]
  - Constipation [None]
  - Fatigue [Not Recovered/Not Resolved]
  - Platelet count decreased [None]
  - Peripheral swelling [None]
  - Fatigue [None]
  - Ascites [None]

NARRATIVE: CASE EVENT DATE: 201601
